FAERS Safety Report 11699746 (Version 1)
Quarter: 2015Q4

REPORT INFORMATION
  Report Type: Spontaneous
  Country: US (occurrence: US)
  Receive Date: 20151104
  Receipt Date: 20151104
  Transmission Date: 20160304
  Serious: No
  Sender: FDA-Public Use
  Company Number: US-ELI_LILLY_AND_COMPANY-US201101003755

PATIENT
  Age: 68 Year
  Sex: Female

DRUGS (2)
  1. FORTEO [Suspect]
     Active Substance: TERIPARATIDE
     Indication: OSTEOPOROSIS
     Dosage: 20 UG, DAILY (1/D)
  2. ACIPHEX [Concomitant]
     Active Substance: RABEPRAZOLE SODIUM

REACTIONS (12)
  - Bone pain [Unknown]
  - Constipation [Unknown]
  - Feeling abnormal [Unknown]
  - Nausea [Unknown]
  - Pain [Unknown]
  - Musculoskeletal pain [Unknown]
  - Gastric disorder [Unknown]
  - Abdominal discomfort [Unknown]
  - Back pain [Unknown]
  - Abdominal pain upper [Unknown]
  - Fatigue [Unknown]
  - Sleep disorder [Unknown]

NARRATIVE: CASE EVENT DATE: 201101
